FAERS Safety Report 25802437 (Version 1)
Quarter: 2025Q3

REPORT INFORMATION
  Report Type: Spontaneous
  Country: US (occurrence: None)
  Receive Date: 20250915
  Receipt Date: 20250915
  Transmission Date: 20251021
  Serious: Yes (Hospitalization)
  Sender: UMEDICA LABS
  Company Number: US-Umedica-000689

PATIENT
  Age: 74 Year
  Sex: Female

DRUGS (8)
  1. ATORVASTATIN [Suspect]
     Active Substance: ATORVASTATIN
     Indication: Acute myocardial infarction
  2. PRASUGREL [Suspect]
     Active Substance: PRASUGREL
     Indication: Acute myocardial infarction
  3. AMLODIPINE [Concomitant]
     Active Substance: AMLODIPINE BESYLATE
  4. ATENOLOL [Concomitant]
     Active Substance: ATENOLOL
  5. ASPIRIN [Concomitant]
     Active Substance: ASPIRIN
  6. DENOSUMAB [Concomitant]
     Active Substance: DENOSUMAB
  7. FAMOTIDINE [Concomitant]
     Active Substance: FAMOTIDINE
  8. LEVOTHYROXINE [Concomitant]
     Active Substance: LEVOTHYROXINE

REACTIONS (2)
  - Drug reaction with eosinophilia and systemic symptoms [Recovering/Resolving]
  - Hepatic function abnormal [Recovered/Resolved]
